FAERS Safety Report 11533508 (Version 4)
Quarter: 2016Q1

REPORT INFORMATION
  Report Type: Spontaneous
  Country: FR (occurrence: FR)
  Receive Date: 20150921
  Receipt Date: 20160122
  Transmission Date: 20160525
  Serious: Yes (Hospitalization)
  Sender: FDA-Public Use
  Company Number: FR-ALLERGAN-1519084US

PATIENT
  Age: 57 Year
  Sex: Male
  Weight: 65 kg

DRUGS (1)
  1. BOTOX [Suspect]
     Active Substance: ONABOTULINUMTOXINA
     Indication: HEMIPARESIS
     Dosage: 150 UNITS, SINGLE
     Route: 030
     Dates: start: 20150623, end: 20150623

REACTIONS (2)
  - Herpes oesophagitis [Recovered/Resolved]
  - Meningitis streptococcal [Recovered/Resolved]

NARRATIVE: CASE EVENT DATE: 20150703
